FAERS Safety Report 9842630 (Version 2)
Quarter: 2014Q1

REPORT INFORMATION
  Report Type: Spontaneous
  Country: DE (occurrence: DE)
  Receive Date: 20140124
  Receipt Date: 20140124
  Transmission Date: 20141002
  Serious: Yes (Hospitalization, Disabling, Other)
  Sender: FDA-Public Use
  Company Number: DE-ACTELION-A-CH2013-90514

PATIENT
  Age: 48 Year
  Sex: Female
  Weight: 49 kg

DRUGS (9)
  1. TRACLEER [Suspect]
     Indication: SKIN ULCER
     Dosage: 62.5 MG, BID
     Route: 048
     Dates: start: 20131014, end: 20131023
  2. NIFEDIPIN [Concomitant]
     Dosage: 20 MG, UNK
  3. OXYGESIC [Concomitant]
     Dosage: 20 MG, BID
  4. RAMIPRIL [Concomitant]
     Dosage: 5 MG, UNK
  5. KREON [Concomitant]
     Dosage: 40000 I/U, TID
  6. IBUPROFEN [Concomitant]
     Dosage: 800 MG, UNK
  7. PANTOPRAZOLE [Concomitant]
     Dosage: 40 MG, BID
  8. PREDNISOLONE [Concomitant]
     Dosage: 5 MG, UNK
  9. ILOMEDIN [Concomitant]
     Dosage: 20 MG, QD

REACTIONS (9)
  - Vertigo [Recovered/Resolved]
  - Tachycardia [Recovered/Resolved]
  - Fatigue [Unknown]
  - Drug intolerance [Recovered/Resolved]
  - Liver function test abnormal [Unknown]
  - Alanine aminotransferase increased [Unknown]
  - Aspartate aminotransferase increased [Unknown]
  - Blood bilirubin increased [Unknown]
  - Palpitations [Recovered/Resolved]
